FAERS Safety Report 7249165-7 (Version None)
Quarter: 2011Q1

REPORT INFORMATION
  Report Type: 
  Country: None (occurrence: None)
  Receive Date: 20110128
  Receipt Date: 20100903
  Transmission Date: 20110831
  Serious: Yes (Hospitalization)
  Sender: FDA-Public Use
  Company Number: US-BAYER-200943221NA

PATIENT
  Sex: Female
  Weight: 73 kg

DRUGS (25)
  1. ZOLPIDEM [Concomitant]
  2. LEVOTHYROXINE SODIUM [Concomitant]
  3. AVANDARYL [Concomitant]
  4. BLOOD PRESSURE MEDICATION (NOS) [Concomitant]
     Dates: start: 20070101
  5. IMITREX [Concomitant]
  6. PENICILLIN [Concomitant]
  7. ROZEREM [Concomitant]
  8. LEXAPRO [Concomitant]
     Dates: start: 20030101
  9. PAROXETINE HCL [Concomitant]
  10. CYCLOBENZAPRINE [Concomitant]
  11. ASA [Concomitant]
     Dates: end: 20081101
  12. YAZ [Suspect]
     Route: 048
     Dates: start: 20070501, end: 20071101
  13. YAZ [Suspect]
     Route: 048
     Dates: start: 20080202, end: 20080801
  14. METFORMIN [Concomitant]
     Dates: end: 20081101
  15. JANUVIA [Concomitant]
     Dates: end: 20081101
  16. ZETIA [Concomitant]
     Dates: end: 20081101
  17. SIMVASTATIN [Concomitant]
  18. MIRTAZAPINE [Concomitant]
  19. STATIN [Concomitant]
     Dates: end: 20081115
  20. CLONAZEPAM [Concomitant]
  21. KLONOPIN [Concomitant]
     Dates: start: 20030101
  22. VYTORIN [Concomitant]
  23. YASMIN [Suspect]
     Dosage: UNK
     Route: 048
     Dates: start: 20080202, end: 20080718
  24. IBUPROFEN [Concomitant]
     Dates: start: 19900101
  25. EFFEXOR [Concomitant]

REACTIONS (10)
  - HAEMORRHAGIC CEREBRAL INFARCTION [None]
  - BALANCE DISORDER [None]
  - DYSPHAGIA [None]
  - NAUSEA [None]
  - PHOTOPHOBIA [None]
  - CEREBELLAR HAEMORRHAGE [None]
  - HEMIPARESIS [None]
  - HEADACHE [None]
  - DIPLOPIA [None]
  - DIZZINESS [None]
